FAERS Safety Report 10437260 (Version 2)
Quarter: 2014Q3

REPORT INFORMATION
  Report Type: Spontaneous
  Country: US (occurrence: US)
  Receive Date: 20140908
  Receipt Date: 20140908
  Transmission Date: 20150326
  Serious: No
  Sender: FDA-Public Use
  Company Number: US-BRISTOL-MYERS SQUIBB COMPANY-19610922

PATIENT
  Age: 10 Year
  Sex: Female

DRUGS (3)
  1. CLONIDINE HCL [Suspect]
     Active Substance: CLONIDINE HYDROCHLORIDE
     Dosage: AT NT
     Route: 048
  2. ABILIFY [Suspect]
     Active Substance: ARIPIPRAZOLE
     Indication: AGGRESSION
     Dosage: 7MAR12-5MG-BID?17JUL12-7.5MG-BID?12MAR13-10MG-BID
     Route: 048
     Dates: start: 20120307
  3. TEGRETOL [Suspect]
     Active Substance: CARBAMAZEPINE
     Route: 048

REACTIONS (2)
  - Off label use [Unknown]
  - Menorrhagia [Unknown]

NARRATIVE: CASE EVENT DATE: 2013
